FAERS Safety Report 12744100 (Version 1)
Quarter: 2016Q3

REPORT INFORMATION
  Report Type: Spontaneous
  Country: FR (occurrence: FR)
  Receive Date: 20160914
  Receipt Date: 20160914
  Transmission Date: 20161109
  Serious: Yes (Hospitalization)
  Sender: FDA-Public Use
  Company Number: FR-ASTRAZENECA-2016SE95465

PATIENT
  Age: 27710 Day
  Sex: Male

DRUGS (11)
  1. CIPROFLOXACINE [Suspect]
     Active Substance: CIPROFLOXACIN
     Indication: PYELONEPHRITIS
     Route: 042
     Dates: start: 20160720, end: 20160728
  2. INNOHEP [Suspect]
     Active Substance: TINZAPARIN SODIUM
     Indication: ACUTE MYOCARDIAL INFARCTION
     Route: 058
     Dates: start: 20160728, end: 20160802
  3. AMOXICILLINE ACIDE CLAVULANIQUE [Suspect]
     Active Substance: AMOXICILLIN\CLAVULANIC ACID
     Indication: PYELONEPHRITIS
     Route: 042
     Dates: start: 20160722, end: 20160728
  4. PLAVIX [Concomitant]
     Active Substance: CLOPIDOGREL BISULFATE
     Indication: ACUTE MYOCARDIAL INFARCTION
  5. FUROSEMIDE. [Suspect]
     Active Substance: FUROSEMIDE
     Route: 048
     Dates: start: 20160722, end: 20160802
  6. PARACETAMOL [Concomitant]
     Active Substance: ACETAMINOPHEN
  7. LANTUS [Concomitant]
     Active Substance: INSULIN GLARGINE
  8. INEXIUM [Suspect]
     Active Substance: ESOMEPRAZOLE
     Route: 042
     Dates: start: 20160720, end: 20160802
  9. CEFTRIAXONE. [Suspect]
     Active Substance: CEFTRIAXONE
     Indication: PYELONEPHRITIS
     Route: 042
     Dates: start: 20160727, end: 20160802
  10. CLOPIDOGREL [Concomitant]
     Active Substance: CLOPIDOGREL BISULFATE
     Indication: ACUTE MYOCARDIAL INFARCTION
  11. KARDEGIC [Concomitant]
     Active Substance: ASPIRIN LYSINE
     Dosage: 75.0MG UNKNOWN

REACTIONS (4)
  - Rash [Recovered/Resolved]
  - Pruritus [Unknown]
  - Rash pustular [Unknown]
  - Generalised erythema [Recovered/Resolved]

NARRATIVE: CASE EVENT DATE: 20160729
